FAERS Safety Report 5754208-3 (Version None)
Quarter: 2008Q2

REPORT INFORMATION
  Report Type: 
  Country: None (occurrence: None)
  Receive Date: 20080530
  Receipt Date: 20080520
  Transmission Date: 20081010
  Serious: Yes (Other)
  Sender: FDA-Public Use
  Company Number: US-PFIZER INC-2008043814

PATIENT
  Sex: Female
  Weight: 63.6 kg

DRUGS (37)
  1. CHANTIX [Suspect]
     Indication: SMOKING CESSATION THERAPY
  2. INSULIN [Concomitant]
  3. GABAPENTIN [Concomitant]
  4. GABAPENTIN [Concomitant]
  5. CITALOPRAM HYDROBROMIDE [Concomitant]
  6. CITALOPRAM HYDROBROMIDE [Concomitant]
  7. SIMVASTATIN [Concomitant]
  8. SIMVASTATIN [Concomitant]
  9. METOCLOPRAMIDE [Concomitant]
  10. METOCLOPRAMIDE [Concomitant]
  11. POTASSIUM CHLORIDE [Concomitant]
  12. POTASSIUM CHLORIDE [Concomitant]
  13. NITROGLYCERIN [Concomitant]
  14. NITROGLYCERIN [Concomitant]
  15. PLAVIX [Concomitant]
  16. PLAVIX [Concomitant]
  17. RANITIDINE [Concomitant]
  18. RANITIDINE [Concomitant]
  19. ACETYLSALICYLIC ACID SRT [Concomitant]
  20. ACETYLSALICYLIC ACID SRT [Concomitant]
  21. ISOSORBIDE MONONITRATE [Concomitant]
  22. ISOSORBIDE MONONITRATE [Concomitant]
  23. BENAZEPRIL HYDROCHLORIDE [Concomitant]
  24. BENAZEPRIL HYDROCHLORIDE [Concomitant]
  25. AMLODIPINE [Concomitant]
  26. AMLODIPINE [Concomitant]
  27. METOPROLOL TARTRATE [Concomitant]
  28. METOPROLOL TARTRATE [Concomitant]
  29. PANTOPRAZOLE [Concomitant]
  30. PANTOPRAZOLE [Concomitant]
  31. ALBUTEROL [Concomitant]
  32. ALBUTEROL [Concomitant]
  33. HYDROCODONE BITARTRATE [Concomitant]
  34. HYDROCODONE BITARTRATE [Concomitant]
  35. CLONAZEPAM [Concomitant]
  36. CLONAZEPAM [Concomitant]
  37. HUMALOG [Concomitant]

REACTIONS (1)
  - BLOOD GLUCOSE INCREASED [None]
